FAERS Safety Report 8087410 (Version 2)
Quarter: 2020Q3

REPORT INFORMATION
  Report Type: Spontaneous
  Country: US (occurrence: US)
  Receive Date: 20110812
  Receipt Date: 20200702
  Transmission Date: 20201103
  Serious: Yes (Other)
  Sender: FDA-Public Use
  Company Number: US-BAYER-2011-071607

PATIENT
  Sex: Female

DRUGS (1)
  1. CIPRO [Suspect]
     Active Substance: CIPROFLOXACIN HYDROCHLORIDE
     Dosage: 50 MG, QID
     Dates: start: 201010

REACTIONS (4)
  - Asthenia [None]
  - Off label use [None]
  - Transient ischaemic attack [None]
  - Muscular weakness [None]

NARRATIVE: CASE EVENT DATE: 201010
